FAERS Safety Report 10004121 (Version 3)
Quarter: 2014Q1

REPORT INFORMATION
  Report Type: Report from Study
  Country: FR (occurrence: FR)
  Receive Date: 20140312
  Receipt Date: 20140313
  Transmission Date: 20141002
  Serious: Yes (Death, Hospitalization)
  Sender: FDA-Public Use
  Company Number: PHHY2013FR142919

PATIENT
  Age: 78 Year
  Sex: Male
  Weight: 70 kg

DRUGS (1)
  1. SANDOSTATIN LAR [Suspect]
     Indication: ENDOCRINE NEOPLASM MALIGNANT
     Dosage: 30 MG, EVERY 4 WEEKS
     Dates: start: 20131001

REACTIONS (2)
  - Malignant neoplasm progression [Fatal]
  - General physical health deterioration [Not Recovered/Not Resolved]
